FAERS Safety Report 16289846 (Version 6)
Quarter: 2020Q2

REPORT INFORMATION
  Report Type: Report from Study
  Country: CO (occurrence: CO)
  Receive Date: 20190509
  Receipt Date: 20200504
  Transmission Date: 20200713
  Serious: Yes (Hospitalization, Other)
  Sender: FDA-Public Use
  Company Number: PHHY2014CO054149

PATIENT
  Age: 19 Year
  Sex: Male
  Weight: 65 kg

DRUGS (1)
  1. GILENYA [Suspect]
     Active Substance: FINGOLIMOD HYDROCHLORIDE
     Indication: MULTIPLE SCLEROSIS
     Dosage: 0.5 MG, QD
     Route: 048
     Dates: start: 20140108, end: 20150404

REACTIONS (25)
  - Motor dysfunction [Recovering/Resolving]
  - White blood cell count decreased [Unknown]
  - Monocyte count increased [Unknown]
  - Influenza like illness [Recovered/Resolved]
  - Painful respiration [Recovering/Resolving]
  - Ataxia [Recovering/Resolving]
  - Cough [Recovered/Resolved]
  - Myalgia [Recovered/Resolved]
  - Multiple sclerosis relapse [Recovered/Resolved with Sequelae]
  - Paraesthesia [Recovering/Resolving]
  - Sensory loss [Recovering/Resolving]
  - Paraplegia [Recovered/Resolved with Sequelae]
  - Muscle spasticity [Recovered/Resolved with Sequelae]
  - Fatigue [Recovering/Resolving]
  - Aspartate aminotransferase increased [Recovering/Resolving]
  - Thyroid cancer [Unknown]
  - Central nervous system lesion [Recovering/Resolving]
  - Eosinophil count increased [Unknown]
  - Vertigo [Recovering/Resolving]
  - Pain in extremity [Recovering/Resolving]
  - Pyrexia [Recovered/Resolved]
  - Paresis [Recovered/Resolved with Sequelae]
  - Muscular weakness [Not Recovered/Not Resolved]
  - Bladder dysfunction [Recovering/Resolving]
  - Alanine aminotransferase increased [Recovering/Resolving]

NARRATIVE: CASE EVENT DATE: 20140218
